FAERS Safety Report 4382734-0 (Version None)
Quarter: 2004Q2

REPORT INFORMATION
  Report Type: 
  Country: None (occurrence: None)
  Receive Date: 20040622
  Receipt Date: 20040615
  Transmission Date: 20050107
  Serious: Yes (Hospitalization)
  Sender: FDA-Public Use
  Company Number: US-BRISTOL-MYERS SQUIBB COMPANY-12614905

PATIENT
  Age: 45 Year
  Sex: Female

DRUGS (4)
  1. SERZONE [Suspect]
     Route: 048
     Dates: end: 20020501
  2. SYNTHROID [Concomitant]
  3. ACIPHEX [Concomitant]
  4. MOTRIN [Concomitant]

REACTIONS (2)
  - HEPATITIS TOXIC [None]
  - VIRAL INFECTION [None]
